FAERS Safety Report 4623302-2 (Version None)
Quarter: 2005Q1

REPORT INFORMATION
  Report Type: 
  Country: None (occurrence: None)
  Receive Date: 20050330
  Receipt Date: 20050314
  Transmission Date: 20050727
  Serious: Yes (Disabling)
  Sender: FDA-Public Use
  Company Number: US-MERCK-0503USA02165

PATIENT
  Age: 69 Year
  Sex: Female

DRUGS (9)
  1. FOSAMAX [Suspect]
     Indication: OSTEOPOROSIS
     Route: 048
     Dates: start: 20050206, end: 20050306
  2. POTASSIUM (UNSPECIFIED) [Concomitant]
     Route: 065
  3. MAXZIDE [Concomitant]
     Route: 065
  4. PREMARIN H-C VAGINAL CREAM [Concomitant]
     Route: 065
  5. ADVIL [Concomitant]
     Route: 065
  6. ASPIRIN [Concomitant]
     Route: 065
  7. HERBS (UNSPECIFIED) [Concomitant]
     Route: 065
  8. FIBERCON [Concomitant]
     Route: 065
  9. GASTROINTESTINAL PREPARATIONS (UNSPECIFIED) [Concomitant]
     Route: 065

REACTIONS (5)
  - DISCOMFORT [None]
  - EMOTIONAL DISTRESS [None]
  - HOT FLUSH [None]
  - OEDEMA PERIPHERAL [None]
  - WEIGHT INCREASED [None]
